FAERS Safety Report 5293667-X (Version None)
Quarter: 2007Q2

REPORT INFORMATION
  Report Type: 
  Country: None (occurrence: None)
  Receive Date: 20070411
  Receipt Date: 20070404
  Transmission Date: 20071010
  Serious: Yes (Congenital Anomaly, Other)
  Sender: FDA-Public Use
  Company Number: FR-SHR-FR-2006-020388

PATIENT
  Age: 19 Year
  Sex: Male

DRUGS (1)
  1. SOTALOL HYDROCHLORIDE [Suspect]
     Dosage: 80 MG, 2X/DAY
     Route: 064
     Dates: start: 19870101, end: 19880101

REACTIONS (3)
  - DRUG EXPOSURE DURING PREGNANCY [None]
  - RENAL APLASIA [None]
  - TESTICULAR DISORDER [None]
